FAERS Safety Report 10121148 (Version 1)
Quarter: 2014Q2

REPORT INFORMATION
  Report Type: Report from Study
  Country: BR (occurrence: BR)
  Receive Date: 20140425
  Receipt Date: 20140425
  Transmission Date: 20141212
  Serious: Yes (Hospitalization, Other)
  Sender: FDA-Public Use
  Company Number: PHHY2013BR156321

PATIENT
  Age: 75 Year
  Sex: Female
  Weight: 65 kg

DRUGS (4)
  1. ACLASTA [Suspect]
     Indication: OSTEOPOROSIS
     Dosage: 5 MG, EVERY YEAR
     Route: 042
     Dates: start: 201307
  2. CALCIUM D3 [Suspect]
     Indication: OSTEOPOROSIS
     Dosage: 1 DF, DAILY
     Route: 048
     Dates: start: 2013, end: 2013
  3. OSCAL//CALCIUM CARBONATE [Concomitant]
     Indication: OSTEOPOROSIS
     Dosage: 1 DF, DAILY
     Dates: start: 2013
  4. GLUCOSAMINE SULFATE W/CHONDROITIN SULFATE [Concomitant]
     Indication: CHONDROPATHY
     Dosage: 1 DF, DAILY
     Dates: start: 2009

REACTIONS (3)
  - Femur fracture [Recovered/Resolved]
  - Fall [Recovered/Resolved]
  - Haemorrhage [Recovered/Resolved]
